FAERS Safety Report 8651691 (Version 2)
Quarter: 2012Q4

REPORT INFORMATION
  Report Type: 
  Country: DE (occurrence: DE)
  Receive Date: 20120706
  Receipt Date: 20120924
  Transmission Date: 20130627
  Serious: Yes (Other)
  Sender: FDA-Public Use
  Company Number: PHHY2012DE057222

PATIENT
  Sex: Female

DRUGS (2)
  1. ZOMETA [Suspect]
     Dosage: UNK UKN, UNK
     Route: 065
     Dates: start: 201106
  2. TAMOXIFEN [Concomitant]
     Dosage: UNK UKN, UNK
     Route: 065
     Dates: start: 201112

REACTIONS (5)
  - Autoimmune disorder [Recovering/Resolving]
  - Liver disorder [Unknown]
  - Gamma-glutamyltransferase increased [Unknown]
  - Uveitis [Recovering/Resolving]
  - Iritis [Recovering/Resolving]
